FAERS Safety Report 7475729-1 (Version None)
Quarter: 2011Q1

REPORT INFORMATION
  Report Type: 
  Country: None (occurrence: None)
  Receive Date: 20110308
  Receipt Date: 20100622
  Transmission Date: 20110831
  Serious: Yes (Other)
  Sender: FDA-Public Use
  Company Number: 2010BH009530

PATIENT
  Age: 42 Year
  Sex: Male

DRUGS (2)
  1. RECOMBINATE [Suspect]
     Indication: ANKLE FRACTURE
     Dosage: 3200 IU; EVERY 8 HR; IV
     Route: 042
     Dates: start: 20091107
  2. RECOMBINATE [Suspect]
     Indication: HAEMOPHILIA
     Dosage: 3200 IU; EVERY 8 HR; IV
     Route: 042
     Dates: start: 20091107

REACTIONS (1)
  - FACTOR VIII INHIBITION [None]
